FAERS Safety Report 10493902 (Version 1)
Quarter: 2014Q4

REPORT INFORMATION
  Report Type: Report from Study
  Country: AR (occurrence: AR)
  Receive Date: 20141003
  Receipt Date: 20141003
  Transmission Date: 20150528
  Serious: Yes (Other)
  Sender: FDA-Public Use
  Company Number: AR-ASTRAZENECA-2014SE73873

PATIENT
  Age: 23589 Day
  Sex: Male

DRUGS (9)
  1. SIMVASTATINE [Concomitant]
     Active Substance: SIMVASTATIN
     Indication: ISCHAEMIC CARDIOMYOPATHY
     Route: 048
  2. ENALPRIL [Concomitant]
     Indication: HYPERTENSION
     Route: 048
  3. TRIMETAZIDINE [Concomitant]
     Active Substance: TRIMETAZIDINE
     Indication: ISCHAEMIC CARDIOMYOPATHY
     Route: 048
  4. AZD6140 [Suspect]
     Active Substance: TICAGRELOR
     Indication: CORONARY ARTERY DISEASE
     Route: 048
     Dates: start: 20111027, end: 20140916
  5. DINITRATE OF ISASORBIDE [Concomitant]
     Indication: ISCHAEMIC CARDIOMYOPATHY
     Route: 048
  6. MONONITRATE 5 ISASORBIDA [Concomitant]
     Indication: ISCHAEMIC CARDIOMYOPATHY
     Route: 048
  7. ATENOLOL. [Concomitant]
     Active Substance: ATENOLOL
     Indication: ISCHAEMIC CARDIOMYOPATHY
     Route: 048
  8. ASPIRIN. [Suspect]
     Active Substance: ASPIRIN
     Route: 048
  9. ALPRAZOLAM. [Concomitant]
     Active Substance: ALPRAZOLAM
     Indication: ANXIETY
     Route: 048

REACTIONS (2)
  - Haematocrit decreased [Not Recovered/Not Resolved]
  - Haemoglobin decreased [Not Recovered/Not Resolved]

NARRATIVE: CASE EVENT DATE: 20140422
